FAERS Safety Report 25773958 (Version 1)
Quarter: 2025Q3

REPORT INFORMATION
  Report Type: Spontaneous
  Country: GB (occurrence: None)
  Receive Date: 20250907
  Receipt Date: 20250907
  Transmission Date: 20251020
  Serious: Yes (Life-Threatening, Disabling)
  Sender: FDA-CTU
  Company Number: None

PATIENT
  Age: 47 Year
  Sex: Female
  Weight: 110 kg

DRUGS (2)
  1. FLUOXETINE [Suspect]
     Active Substance: FLUOXETINE HYDROCHLORIDE
     Indication: Depression
     Route: 048
  2. CITALOPRAM [Suspect]
     Active Substance: CITALOPRAM

REACTIONS (11)
  - Akathisia [None]
  - Suicidal ideation [None]
  - Hallucination, auditory [None]
  - Anxiety [None]
  - Restlessness [None]
  - Bipolar I disorder [None]
  - Impaired work ability [None]
  - Autonomic nervous system imbalance [None]
  - Emotional disorder [None]
  - Sexual dysfunction [None]
  - Cognitive disorder [None]

NARRATIVE: CASE EVENT DATE: 20161203
